FAERS Safety Report 7232507-6 (Version None)
Quarter: 2011Q1

REPORT INFORMATION
  Report Type: 
  Country: None (occurrence: None)
  Receive Date: 20110105
  Receipt Date: 20101221
  Transmission Date: 20110831
  Serious: Yes (Other)
  Sender: FDA-Public Use
  Company Number: 2010SP003584

PATIENT
  Age: 54 Year
  Sex: Male

DRUGS (8)
  1. NIACIN [Concomitant]
  2. NORVAS /00972401/ [Concomitant]
  3. PREV MEDS [Concomitant]
  4. ALLERGRA /01314201/ [Concomitant]
  5. MOBIC [Concomitant]
  6. OMNARIS [Suspect]
     Indication: RHINITIS ALLERGIC
     Dosage: NASAL; NASAL
     Route: 045
     Dates: start: 20100901, end: 20100901
  7. OMNARIS [Suspect]
     Indication: RHINITIS ALLERGIC
     Dosage: NASAL; NASAL
     Route: 045
     Dates: start: 20101001, end: 20101001
  8. LEVOXYL [Concomitant]

REACTIONS (3)
  - CONVULSION [None]
  - JOINT STIFFNESS [None]
  - TONGUE BITING [None]
